FAERS Safety Report 9213385 (Version 1)
Quarter: 2013Q2

REPORT INFORMATION
  Report Type: Spontaneous
  Country: MX (occurrence: MX)
  Receive Date: 20130405
  Receipt Date: 20130405
  Transmission Date: 20140414
  Serious: Yes (Other)
  Sender: FDA-Public Use
  Company Number: PHHY2013MX032877

PATIENT
  Age: 75 Year
  Sex: Male

DRUGS (2)
  1. CO-DIOVAN [Suspect]
     Indication: HYPERTENSION
     Dosage: 1 DF (160/12.5 MG), DAILY
     Route: 048
     Dates: start: 201207, end: 201212
  2. AMLODIPINE [Concomitant]
     Indication: HYPERTENSION
     Dosage: 1 DF, DAILY
     Dates: start: 201302

REACTIONS (4)
  - Colon neoplasm [Not Recovered/Not Resolved]
  - Renal disorder [Not Recovered/Not Resolved]
  - Delirium [Not Recovered/Not Resolved]
  - Infection [Not Recovered/Not Resolved]
